FAERS Safety Report 13730515 (Version 1)
Quarter: 2017Q3

REPORT INFORMATION
  Report Type: Report from Study
  Country: NL (occurrence: IT)
  Receive Date: 20170707
  Receipt Date: 20170707
  Transmission Date: 20171127
  Serious: Yes (Life-Threatening)
  Sender: FDA-Public Use
  Company Number: IT-TEVA-783606ROM

PATIENT
  Age: 17 Year
  Sex: Female

DRUGS (2)
  1. KETOPROFEN. [Suspect]
     Active Substance: KETOPROFEN
     Dosage: 160MG
     Route: 048
  2. NIMESULIDE [Interacting]
     Active Substance: NIMESULIDE
     Dosage: 300MG
     Route: 048

REACTIONS (3)
  - Gastritis [Recovered/Resolved with Sequelae]
  - Incorrect dose administered [Recovered/Resolved with Sequelae]
  - Drug interaction [Recovered/Resolved with Sequelae]
